FAERS Safety Report 5468859-7 (Version None)
Quarter: 2007Q3

REPORT INFORMATION
  Report Type: 
  Country: None (occurrence: None)
  Receive Date: 20070926
  Receipt Date: 20070914
  Transmission Date: 20080115
  Serious: Yes (Other)
  Sender: FDA-Public Use
  Company Number: US-PFIZER INC-2007078018

PATIENT
  Sex: Female
  Weight: 63.636 kg

DRUGS (6)
  1. LIPITOR [Suspect]
     Indication: BLOOD CHOLESTEROL INCREASED
     Dosage: DAILY DOSE:20MG
  2. PREMARIN [Concomitant]
  3. VALTREX [Concomitant]
  4. LEVOTHYROXINE SODIUM [Concomitant]
  5. AMITRIPTYLINE HCL [Concomitant]
  6. FLUOXETINE [Concomitant]

REACTIONS (1)
  - COELIAC DISEASE [None]
